FAERS Safety Report 19986430 (Version 2)
Quarter: 2021Q4

REPORT INFORMATION
  Report Type: Spontaneous
  Country: JP (occurrence: JP)
  Receive Date: 20211022
  Receipt Date: 20211228
  Transmission Date: 20220303
  Serious: Yes (Hospitalization)
  Sender: FDA-Public Use
  Company Number: JP-BAYER-2021A234528

PATIENT
  Age: 42 Year
  Sex: Male
  Weight: 87.1 kg

DRUGS (12)
  1. ADEMPAS [Suspect]
     Active Substance: RIOCIGUAT
     Indication: Heritable pulmonary arterial hypertension
     Dosage: DAILY DOSE 1.5MG
     Route: 048
     Dates: start: 20180219, end: 20180805
  2. ADEMPAS [Suspect]
     Active Substance: RIOCIGUAT
     Indication: Heritable pulmonary arterial hypertension
     Dosage: DAILY DOSE 4.5MG
     Route: 048
     Dates: start: 20180806, end: 20181118
  3. ADEMPAS [Suspect]
     Active Substance: RIOCIGUAT
     Indication: Heritable pulmonary arterial hypertension
     Dosage: DAILY DOSE 6MG
     Route: 048
     Dates: start: 20181119, end: 20210108
  4. FEBUXOSTAT [Suspect]
     Active Substance: FEBUXOSTAT
     Indication: Hyperuricaemia
     Dosage: DAILY DOSE 20MG
     Route: 048
     Dates: start: 20130417, end: 20201120
  5. ZETIA [Suspect]
     Active Substance: EZETIMIBE
     Indication: Dyslipidaemia
     Dosage: DAILY DOSE 10MG
     Route: 048
     Dates: start: 20160401, end: 20201120
  6. BEZAFIBRATE [Suspect]
     Active Substance: BEZAFIBRATE
     Indication: Dyslipidaemia
     Dosage: DAILY DOSE 400MG
     Route: 048
     Dates: start: 20160816, end: 20201120
  7. AMBROXOL HYDROCHLORIDE [Suspect]
     Active Substance: AMBROXOL HYDROCHLORIDE
     Indication: Bronchitis
     Dosage: DAILY DOSE 45MG
     Route: 048
     Dates: start: 20160816, end: 20201120
  8. FEXOFENADINE HYDROCHLORIDE [Suspect]
     Active Substance: FEXOFENADINE HYDROCHLORIDE
     Indication: Rhinitis allergic
     Dosage: DAILY DOSE 120MG
     Route: 048
     Dates: start: 20160122, end: 20201120
  9. TREPROSTINIL [Concomitant]
     Active Substance: TREPROSTINIL
  10. TORSEMIDE [Concomitant]
     Active Substance: TORSEMIDE
     Dosage: UNK
     Dates: end: 20201120
  11. POTASSIUM ASPARTATE [Concomitant]
     Active Substance: POTASSIUM ASPARTATE
  12. OPSUMIT [Concomitant]
     Active Substance: MACITENTAN

REACTIONS (2)
  - Thrombocytopenia [Recovered/Resolved]
  - Drug interaction [None]

NARRATIVE: CASE EVENT DATE: 20201023
